FAERS Safety Report 6137955-3 (Version None)
Quarter: 2009Q1

REPORT INFORMATION
  Report Type: 
  Country: None (occurrence: None)
  Receive Date: 20090331
  Receipt Date: 20090317
  Transmission Date: 20090719
  Serious: Yes (Hospitalization, Other)
  Sender: FDA-Public Use
  Company Number: FR-PFIZER INC-2008156992

PATIENT

DRUGS (24)
  1. VFEND [Suspect]
     Route: 042
  2. VFEND [Suspect]
     Indication: ASPERGILLOSIS
     Dosage: 200 MG, 2X/DAY
     Route: 048
     Dates: start: 20081116, end: 20081213
  3. CIPROFLOXACIN HCL [Concomitant]
  4. VANCOMYCIN [Concomitant]
  5. TIENAM [Concomitant]
  6. MOPRAL [Concomitant]
  7. ZELITREX [Concomitant]
  8. GRANOCYTE [Concomitant]
  9. KIDROLASE [Concomitant]
  10. PENTAMIDINE [Suspect]
     Indication: PNEUMOCYSTIS JIROVECI PNEUMONIA
     Dosage: UNK
     Dates: start: 20081119
  11. FASTURTEC [Concomitant]
     Dosage: 12 G, UNK
  12. METHOTREXATE SODIUM [Concomitant]
     Dosage: 15 MG, UNK
  13. PRIMPERAN [Concomitant]
  14. CYTARABINE [Concomitant]
     Dosage: 40 MG, UNK
  15. VINCRISTINE SULFATE [Concomitant]
     Dosage: 2 MG, UNK
  16. HEPARIN SODIUM [Concomitant]
     Dosage: 5000 IU, UNK
  17. CERUBIDINE [Concomitant]
     Dosage: 50 MG/M2, UNK
  18. ONDANSETRON HCL [Concomitant]
  19. SOLU-MEDROL [Concomitant]
     Dosage: 48 MG/M2, UNK
  20. CYCLOPHOSPHAMIDE [Concomitant]
  21. ZOLPIDEM [Concomitant]
  22. ATARAX [Concomitant]
     Dosage: 50 MG, 1X/DAY
  23. EMEND [Concomitant]
  24. ALL OTHER THERAPEUTIC PRODUCTS [Concomitant]

REACTIONS (3)
  - HYPERHIDROSIS [None]
  - HYPOGLYCAEMIA [None]
  - MALAISE [None]
